FAERS Safety Report 18623313 (Version 1)
Quarter: 2020Q4

REPORT INFORMATION
  Report Type: Spontaneous
  Country: US (occurrence: US)
  Receive Date: 20201216
  Receipt Date: 20201216
  Transmission Date: 20210114
  Serious: Yes (Hospitalization)
  Sender: FDA-Public Use
  Company Number: None

PATIENT
  Age: 71 Year
  Sex: Male
  Weight: 109.7 kg

DRUGS (3)
  1. CISPLATIN. [Concomitant]
     Active Substance: CISPLATIN
  2. OLANZAPINE. [Suspect]
     Active Substance: OLANZAPINE
     Dates: end: 20201119
  3. GEMCITABINE. [Concomitant]
     Active Substance: GEMCITABINE

REACTIONS (4)
  - Blood pressure diastolic increased [None]
  - Neutrophil count decreased [None]
  - Dysuria [None]
  - Blood pressure systolic increased [None]

NARRATIVE: CASE EVENT DATE: 20201207
